FAERS Safety Report 23115318 (Version 1)
Quarter: 2023Q4

REPORT INFORMATION
  Report Type: Report from Study
  Country: CN (occurrence: CN)
  Receive Date: 20231027
  Receipt Date: 20231027
  Transmission Date: 20240109
  Serious: Yes (Other)
  Sender: FDA-Public Use
  Company Number: CN-BAXTER-2023BAX033958

PATIENT
  Age: 62 Year
  Sex: Male

DRUGS (2)
  1. EXTRANEAL [Suspect]
     Active Substance: CALCIUM CHLORIDE\ICODEXTRIN\MAGNESIUM CHLORIDE\SODIUM CHLORIDE\SODIUM LACTATE
     Indication: End stage renal disease
     Route: 033
     Dates: start: 20220701
  2. UNSPECIFIED INGREDIENT [Suspect]
     Active Substance: UNSPECIFIED INGREDIENT
     Route: 065

REACTIONS (4)
  - Abdominal infection [Unknown]
  - Abdominal pain [Unknown]
  - Product administration error [Unknown]
  - Device connection issue [Unknown]

NARRATIVE: CASE EVENT DATE: 20230702
